FAERS Safety Report 19820778 (Version 1)
Quarter: 2021Q3

REPORT INFORMATION
  Report Type: Spontaneous
  Country: US (occurrence: US)
  Receive Date: 20210912
  Receipt Date: 20210912
  Transmission Date: 20211014
  Serious: Yes (Hospitalization, Disabling)
  Sender: FDA-Public Use
  Company Number: None

PATIENT
  Age: 29 Year
  Sex: Male
  Weight: 77.4 kg

DRUGS (9)
  1. ASHWAGHANDA [Concomitant]
  2. FENUGREEK [Concomitant]
     Active Substance: FENUGREEK SEED
  3. OMEGA 3 [Concomitant]
     Active Substance: OMEGA-3 FATTY ACIDS
  4. MINOXIDIL TOPICAL AEROSOL, 5% (FOAM) HAIR REGROWTH TREATMENT FOR M [Suspect]
     Active Substance: MINOXIDIL
     Indication: ALOPECIA
     Dosage: ?          QUANTITY:1 HALF CAP FULL;??
     Route: 061
     Dates: start: 20210430, end: 20210514
  5. L?CITRULINE [Concomitant]
  6. VITAMIN C [Concomitant]
     Active Substance: ASCORBIC ACID
  7. L?ARGANINE [Concomitant]
  8. CALCIUM [Concomitant]
     Active Substance: CALCIUM
  9. VITAMIN D [Suspect]
     Active Substance: VITAMIN D NOS

REACTIONS (9)
  - Testicular pain [None]
  - Lymphadenopathy [None]
  - Muscle spasms [None]
  - Asthenia [None]
  - Erectile dysfunction [None]
  - Semen volume decreased [None]
  - Neck pain [None]
  - Genital hypoaesthesia [None]
  - Joint noise [None]

NARRATIVE: CASE EVENT DATE: 20210514
